FAERS Safety Report 12986396 (Version 1)
Quarter: 2016Q4

REPORT INFORMATION
  Report Type: Spontaneous
  Country: US (occurrence: US)
  Receive Date: 20161130
  Receipt Date: 20161130
  Transmission Date: 20170207
  Serious: Yes (Other)
  Sender: FDA-Public Use
  Company Number: US-AMGEN-USASP2016166372

PATIENT
  Age: 80 Year
  Sex: Female

DRUGS (11)
  1. ACETAMINOPHEN W/OXYCODONE [Concomitant]
     Active Substance: ACETAMINOPHEN\OXYCODONE HYDROCHLORIDE
     Dosage: 11/2 BID
     Route: 048
  2. VERAPAMIL [Concomitant]
     Active Substance: VERAPAMIL HYDROCHLORIDE
     Indication: HYPERTENSION
     Dosage: 240 MG, QD (30 CAPSULE)
     Route: 048
  3. VITAMIN D3 [Concomitant]
     Active Substance: CHOLECALCIFEROL
     Dosage: 2000 IU/CAPSULE, QD
     Route: 048
  4. PAZOPANIB [Suspect]
     Active Substance: PAZOPANIB
     Indication: PRODUCT USED FOR UNKNOWN INDICATION
     Dosage: 400 MG, QD
     Route: 048
     Dates: start: 20130126, end: 20141023
  5. LEVOTHYROXINE. [Concomitant]
     Active Substance: LEVOTHYROXINE
     Indication: HYPOTHYROIDISM
     Dosage: 75 MUG, QD
     Route: 048
  6. LASIX [Concomitant]
     Active Substance: FUROSEMIDE
     Dosage: 20 MG, QD
     Route: 048
  7. ACETAMINOPHEN W/OXYCODONE [Concomitant]
     Active Substance: ACETAMINOPHEN\OXYCODONE HYDROCHLORIDE
     Indication: MUSCULOSKELETAL PAIN
     Dosage: 7.6/325 MG, BID (Q4-6 HR)
     Route: 048
  8. DIFLUCAN [Concomitant]
     Active Substance: FLUCONAZOLE
     Indication: VULVOVAGINAL MYCOTIC INFECTION
     Dosage: 100 MG, QD
     Route: 048
  9. XGEVA [Suspect]
     Active Substance: DENOSUMAB
     Indication: PRODUCT USED FOR UNKNOWN INDICATION
     Dosage: UNK
     Route: 065
     Dates: start: 20130522, end: 20130910
  10. NYSTATIN. [Concomitant]
     Active Substance: NYSTATIN
     Dosage: 30 G (100000 UNIT/G), TID
     Route: 061
  11. BEELITH [Concomitant]
     Dosage: UNK UNK, QD
     Route: 048

REACTIONS (21)
  - Musculoskeletal pain [Unknown]
  - Tenderness [Unknown]
  - Swelling [Unknown]
  - Intermittent claudication [Unknown]
  - Vaginal haemorrhage [Unknown]
  - Disease progression [Unknown]
  - Abdominal discomfort [Unknown]
  - Pulmonary mass [Unknown]
  - Abdominal pain [Unknown]
  - Decreased appetite [Unknown]
  - Palpitations [Unknown]
  - Endometrial adenocarcinoma [Unknown]
  - Vulvovaginal mycotic infection [Unknown]
  - Oedema peripheral [Unknown]
  - Hypertension [Unknown]
  - Gait disturbance [Unknown]
  - Haemangioma [Unknown]
  - Hypophosphataemia [Unknown]
  - Abdominal hernia [Unknown]
  - Clavicle fracture [Unknown]
  - Amylase increased [Unknown]
